FAERS Safety Report 14324459 (Version 1)
Quarter: 2017Q4

REPORT INFORMATION
  Report Type: Report from Study
  Country: SG (occurrence: SG)
  Receive Date: 20171226
  Receipt Date: 20171226
  Transmission Date: 20180321
  Serious: Yes (Hospitalization, Other)
  Sender: FDA-Public Use
  Company Number: SG-AUROBINDO-AUR-APL-2017-45601

PATIENT

DRUGS (1)
  1. CARVEDILOL. [Suspect]
     Active Substance: CARVEDILOL
     Indication: PRODUCT USED FOR UNKNOWN INDICATION
     Dosage: UNK
     Route: 065

REACTIONS (13)
  - Coma scale abnormal [Unknown]
  - Tachycardia [Unknown]
  - Somnolence [Unknown]
  - Blood pressure increased [Unknown]
  - Agitation [Unknown]
  - Vomiting [Unknown]
  - Toxicity to various agents [Unknown]
  - Hypokalaemia [Unknown]
  - Alanine aminotransferase increased [Unknown]
  - Heart rate increased [Unknown]
  - Delirium [Unknown]
  - Hepatotoxicity [Unknown]
  - Abdominal pain upper [Unknown]
